FAERS Safety Report 25454239 (Version 1)
Quarter: 2025Q2

REPORT INFORMATION
  Report Type: Report from Study
  Country: US (occurrence: US)
  Receive Date: 20250619
  Receipt Date: 20250619
  Transmission Date: 20250716
  Serious: Yes (Death)
  Sender: ROCHE
  Company Number: US-ROCHE-10000313500

PATIENT
  Age: 81 Year
  Sex: Male

DRUGS (1)
  1. MYCOPHENOLATE MOFETIL [Suspect]
     Active Substance: MYCOPHENOLATE MOFETIL
     Indication: Heart transplant
     Route: 048

REACTIONS (1)
  - Death [Fatal]

NARRATIVE: CASE EVENT DATE: 20250220
